FAERS Safety Report 7321826 (Version 6)
Quarter: 2013Q4

REPORT INFORMATION
  Report Type: Spontaneous
  Country: CN (occurrence: None)
  Receive Date: 20100222
  Receipt Date: 20131029
  Transmission Date: 20140711
  Serious: Yes (Life-Threatening)
  Sender: FDA-Public Use
  Company Number: CN-JNJFOC-20100200056

PATIENT
  Age: 27 Year
  Sex: Male
  Weight: 64 kg

DRUGS (1)
  1. DECITABINE [Suspect]
     Indication: MYELODYSPLASTIC SYNDROME
     Dosage: 26 MG, INTRAVENOUS
     Route: 042
     Dates: start: 20091230, end: 20100101

REACTIONS (14)
  - Lung infection [None]
  - Septic shock [None]
  - Delirium [None]
  - Altered state of consciousness [None]
  - Irritability [None]
  - Restlessness [None]
  - Anhidrosis [None]
  - Escherichia bacteraemia [None]
  - Fungal infection [None]
  - Anal infection [None]
  - Proctalgia [None]
  - Pyrexia [None]
  - Agranulocytosis [None]
  - Chills [None]
